FAERS Safety Report 21509105 (Version 2)
Quarter: 2022Q4

REPORT INFORMATION
  Report Type: Report from Study
  Country: RO (occurrence: RO)
  Receive Date: 20221026
  Receipt Date: 20221110
  Transmission Date: 20230113
  Serious: Yes (Other)
  Sender: FDA-Public Use
  Company Number: RO-ABBVIE-4159519

PATIENT
  Age: 66 Year
  Sex: Female

DRUGS (4)
  1. GLECAPREVIR\PIBRENTASVIR [Suspect]
     Active Substance: GLECAPREVIR\PIBRENTASVIR
     Indication: Chronic hepatitis C
     Dosage: 300 MG/120 MG
     Route: 048
     Dates: start: 20220816, end: 20220831
  2. AMLODIPINE BESYLATE\INDAPAMIDE\PERINDOPRIL ARGININE [Concomitant]
     Active Substance: AMLODIPINE BESYLATE\INDAPAMIDE\PERINDOPRIL ARGININE
     Indication: Hypertension
     Dosage: 1 TABLET?STARTED PRIOR TO MAVIRET THERAPY
     Route: 048
  3. FUROSEMIDE [Concomitant]
     Active Substance: FUROSEMIDE
     Indication: Hypertension
     Dosage: 1 TABLET?STARTED PRIOR TO MAVIRET THERAPY AND TOOK WHEN REQUIRED
     Route: 048
  4. RILMENIDINE [Concomitant]
     Active Substance: RILMENIDINE
     Indication: Hypertension
     Dosage: 2 TABLET?STARTED PRIOR TO MAVIRET THERAPY AND TOOK WHEN REQUIRED
     Route: 048

REACTIONS (4)
  - Hypertension [Recovered/Resolved]
  - Nausea [Recovered/Resolved]
  - Somnolence [Recovered/Resolved]
  - Dizziness [Recovered/Resolved]

NARRATIVE: CASE EVENT DATE: 20220801
